APPROVED DRUG PRODUCT: BUPHENYL
Active Ingredient: SODIUM PHENYLBUTYRATE
Strength: 500MG
Dosage Form/Route: TABLET;ORAL
Application: N020572 | Product #001
Applicant: HORIZON THERAPEUTICS US HOLDING LLC
Approved: May 13, 1996 | RLD: Yes | RS: No | Type: DISCN